FAERS Safety Report 21385899 (Version 2)
Quarter: 2022Q4

REPORT INFORMATION
  Report Type: Spontaneous
  Country: IT (occurrence: IT)
  Receive Date: 20220928
  Receipt Date: 20221003
  Transmission Date: 20230112
  Serious: Yes (Other)
  Sender: FDA-Public Use
  Company Number: IT-Accord-279388

PATIENT
  Age: 55 Year
  Sex: Female

DRUGS (4)
  1. MITOMYCIN [Suspect]
     Active Substance: MITOMYCIN
     Indication: Papilloma viral infection
     Dosage: 10 MG/M2, DAYS 1 AND 29
  2. FLUOROURACIL [Suspect]
     Active Substance: FLUOROURACIL
     Indication: Papilloma viral infection
     Dosage: CONTINUOUS INFUSIONS 750 MG/M2, DAYS 1-5 AND 29-33
  3. FLUOROURACIL [Suspect]
     Active Substance: FLUOROURACIL
     Indication: Metastases to lymph nodes
     Dosage: CONTINUOUS INFUSIONS 750 MG/M2, DAYS 1-5 AND 29-33
  4. MITOMYCIN [Suspect]
     Active Substance: MITOMYCIN
     Indication: Metastases to lymph nodes
     Dosage: 10 MG/M2, DAYS 1 AND 29

REACTIONS (8)
  - Neutropenia [Unknown]
  - Anaemia [Unknown]
  - Nausea [Unknown]
  - Diarrhoea [Unknown]
  - Pain [Unknown]
  - Cystitis [Unknown]
  - Radiation skin injury [Unknown]
  - Off label use [Unknown]
